FAERS Safety Report 13939767 (Version 1)
Quarter: 2017Q3

REPORT INFORMATION
  Report Type: Spontaneous
  Country: US (occurrence: US)
  Receive Date: 20170906
  Receipt Date: 20170906
  Transmission Date: 20171127
  Serious: Yes (Other)
  Sender: FDA-Public Use
  Company Number: None

PATIENT
  Age: 51 Year
  Sex: Female
  Weight: 125.1 kg

DRUGS (2)
  1. DOXYCYCLINE HYCLATE. [Suspect]
     Active Substance: DOXYCYCLINE HYCLATE
     Indication: SALPINGITIS
     Dosage: ?          QUANTITY:20 CAPSULE(S);?
     Route: 048
     Dates: start: 20170831, end: 20170904
  2. ADULT GUMMY MULTIVITAMIN [Concomitant]

REACTIONS (4)
  - Palpitations [None]
  - Hypersensitivity [None]
  - Menometrorrhagia [None]
  - Menorrhagia [None]

NARRATIVE: CASE EVENT DATE: 20170901
